FAERS Safety Report 9492243 (Version 1)
Quarter: 2013Q3

REPORT INFORMATION
  Report Type: Spontaneous
  Country: GB (occurrence: GB)
  Receive Date: 20130830
  Receipt Date: 20130830
  Transmission Date: 20140515
  Serious: Yes (Other)
  Sender: FDA-Public Use
  Company Number: GB-PFIZER INC-2013246445

PATIENT
  Age: 51 Year
  Sex: Female
  Weight: 108.86 kg

DRUGS (13)
  1. VENLAFAXINE HCL [Suspect]
     Indication: DEPRESSION
     Dosage: 150 MG, UNK
     Route: 048
  2. VENLAFAXINE HCL [Suspect]
     Dosage: 75 MG, UNK
     Route: 048
     Dates: start: 2013, end: 2013
  3. BISOPROLOL [Concomitant]
     Dosage: UNK
  4. RAMIPRIL [Concomitant]
     Dosage: UNK
  5. SIMVASTATIN [Concomitant]
     Dosage: UNK
  6. LANSOPRAZOLE [Concomitant]
     Dosage: UNK
  7. SERTRALINE [Concomitant]
     Dosage: UNK
  8. SOLIFENACIN [Concomitant]
     Dosage: UNK
  9. AMLODIPINE [Concomitant]
     Dosage: UNK
  10. ASPIRIN [Concomitant]
     Dosage: UNK
  11. GLUCOSAMINE WITH CHONDROITIN [Concomitant]
     Dosage: UNK
  12. CO-CODAMOL [Concomitant]
     Dosage: UNK
  13. TRAXAM [Concomitant]
     Dosage: UNK

REACTIONS (12)
  - Withdrawal syndrome [Not Recovered/Not Resolved]
  - Paraesthesia [Not Recovered/Not Resolved]
  - Dizziness [Not Recovered/Not Resolved]
  - Nausea [Not Recovered/Not Resolved]
  - Abdominal discomfort [Not Recovered/Not Resolved]
  - Palpitations [Not Recovered/Not Resolved]
  - Visual impairment [Not Recovered/Not Resolved]
  - Insomnia [Not Recovered/Not Resolved]
  - Depression [Not Recovered/Not Resolved]
  - Tinnitus [Unknown]
  - Confusional state [Unknown]
  - Cardiac disorder [Unknown]
